FAERS Safety Report 13394206 (Version 1)
Quarter: 2017Q1

REPORT INFORMATION
  Report Type: Spontaneous
  Country: None (occurrence: US)
  Receive Date: 20170331
  Receipt Date: 20170331
  Transmission Date: 20170429
  Serious: Yes (Hospitalization)
  Sender: FDA-Public Use
  Company Number: None

PATIENT
  Sex: Male
  Weight: 101 kg

DRUGS (1)
  1. CYTARABINE. [Suspect]
     Active Substance: CYTARABINE
     Dates: end: 20170216

REACTIONS (3)
  - Generalised tonic-clonic seizure [None]
  - Seizure [None]
  - Drug dose omission [None]

NARRATIVE: CASE EVENT DATE: 20170321
